FAERS Safety Report 8704880 (Version 2)
Quarter: 2012Q4

REPORT INFORMATION
  Report Type: Report from Study
  Country: BE (occurrence: BE)
  Receive Date: 20120803
  Receipt Date: 20120921
  Transmission Date: 20130627
  Serious: Yes (Hospitalization)
  Sender: FDA-Public Use
  Company Number: BE-PFIZER INC-2012185566

PATIENT
  Age: 60 Year
  Sex: Female
  Weight: 106 kg

DRUGS (7)
  1. GENOTROPIN [Suspect]
     Dosage: 0.5 mg, 1xday, 7injections/week
     Route: 058
     Dates: start: 20070503
  2. APROVEL [Concomitant]
     Indication: HYPERTENSION
     Dosage: UNK
     Dates: start: 20031002
  3. MAGNESIUM [Concomitant]
     Indication: FATIGUE
     Dosage: UNK
     Dates: start: 20040201
  4. EZETROL [Concomitant]
     Indication: HYPERCHOLESTEROLAEMIA
     Dosage: UNK
     Dates: start: 20050425
  5. NEXIUM [Concomitant]
     Indication: OESOPHAGITIS
     Dosage: UNK
     Dates: start: 20040215
  6. LEVOTHYROXINE SODIUM [Concomitant]
     Indication: BLOOD THYROID STIMULATING HORMONE DECREASED
     Dosage: UNK
     Dates: start: 20040226
  7. LEVOTHYROXINE SODIUM [Concomitant]
     Indication: PRIMARY HYPOTHYROIDISM

REACTIONS (1)
  - Osteoarthritis [Unknown]
